FAERS Safety Report 8509935-1 (Version None)
Quarter: 2012Q3

REPORT INFORMATION
  Report Type: 
  Country: None (occurrence: None)
  Receive Date: 20120713
  Receipt Date: 20120710
  Transmission Date: 20120928
  Serious: Yes (Hospitalization, Other)
  Sender: FDA-Public Use
  Company Number: US-009507513-1112USA01227

PATIENT

DRUGS (15)
  1. FOSAMAX [Suspect]
     Indication: OSTEOPOROSIS
     Dosage: 70 MG, QW
     Route: 048
     Dates: start: 20050914, end: 20080101
  2. MK-9359 [Concomitant]
     Dosage: 25 MG, QD
  3. ASPIRIN [Concomitant]
     Dosage: 81 MG, QD
  4. ALENDRONATE SODIUM [Suspect]
     Indication: OSTEOPENIA
     Dosage: 70 MG, QW
     Route: 048
     Dates: start: 20080218, end: 20080816
  5. ALENDRONATE SODIUM [Suspect]
     Indication: OSTEOPOROSIS
  6. FOSAMAX [Suspect]
     Dosage: 70 MG, QW
     Route: 048
     Dates: start: 20081110, end: 20100917
  7. THERAPY UNSPECIFIED [Concomitant]
     Indication: HYPERCHOLESTEROLAEMIA
     Route: 048
  8. MK-0152 [Concomitant]
     Dosage: 25 MG, QD
     Route: 048
  9. MK-9278 [Concomitant]
     Dosage: UNK UNK, QD
     Dates: start: 20000707
  10. PREMARIN [Concomitant]
     Dosage: 0.625 MG, QD
  11. FOSAMAX [Suspect]
     Indication: OSTEOPENIA
     Dosage: 10 MG, QD
     Route: 048
     Dates: start: 20000707
  12. CALCIUM (UNSPECIFIED) [Concomitant]
     Dosage: ^600 MG^
     Route: 048
  13. THERAPY UNSPECIFIED [Concomitant]
     Indication: HYPERTENSION
  14. CALCIUM CARBONATE [Concomitant]
     Dosage: 1250 MG, QD
     Dates: start: 20000707
  15. FOSAMAX [Suspect]

REACTIONS (38)
  - BRADYCARDIA [None]
  - OSTEOARTHRITIS [None]
  - CATARACT [None]
  - SYNCOPE [None]
  - TRIGGER FINGER [None]
  - ANAEMIA POSTOPERATIVE [None]
  - FEMUR FRACTURE [None]
  - CAROTID ARTERY STENOSIS [None]
  - FOOT FRACTURE [None]
  - PAIN [None]
  - UTERINE DISORDER [None]
  - OEDEMA PERIPHERAL [None]
  - OSTEOPENIA [None]
  - EXOSTOSIS [None]
  - HYPERLIPIDAEMIA [None]
  - HAND FRACTURE [None]
  - BONE DISORDER [None]
  - CEREBRAL ATROPHY [None]
  - FIBROCYSTIC BREAST DISEASE [None]
  - POST PROCEDURAL HAEMORRHAGE [None]
  - DIZZINESS [None]
  - ADVERSE DRUG REACTION [None]
  - ARTHRITIS [None]
  - MEMORY IMPAIRMENT [None]
  - URINARY TRACT INFECTION [None]
  - ARTHRALGIA [None]
  - CYST [None]
  - BLOOD GLUCOSE INCREASED [None]
  - BLOOD CALCIUM INCREASED [None]
  - BLOOD UREA INCREASED [None]
  - PLANTAR FASCIITIS [None]
  - STERNAL FRACTURE [None]
  - SKIN ULCER [None]
  - ROAD TRAFFIC ACCIDENT [None]
  - BREAST DISORDER [None]
  - CEREBRAL CALCIFICATION [None]
  - THROMBOCYTOPENIA [None]
  - SINUS ARRHYTHMIA [None]
